FAERS Safety Report 9996090 (Version 1)
Quarter: 2014Q1

REPORT INFORMATION
  Report Type: Report from Study
  Country: JP (occurrence: JP)
  Receive Date: 20140311
  Receipt Date: 20140311
  Transmission Date: 20141002
  Serious: Yes (Hospitalization)
  Sender: FDA-Public Use
  Company Number: JP-SA-2014SA027600

PATIENT
  Age: 16 Year
  Sex: Female

DRUGS (29)
  1. THYMOGLOBULINE [Suspect]
     Indication: BONE MARROW CONDITIONING REGIMEN
     Route: 042
     Dates: start: 20130218, end: 20130219
  2. PROGRAF [Suspect]
     Indication: PROPHYLAXIS AGAINST GRAFT VERSUS HOST DISEASE
     Route: 065
     Dates: start: 20130330, end: 20130823
  3. ACICLOVIR [Concomitant]
     Indication: INFECTION PROPHYLAXIS
     Dates: start: 20121009, end: 20130823
  4. URSO [Concomitant]
     Indication: PROPHYLAXIS
     Dates: start: 20120912, end: 20130823
  5. TAKEPRON [Concomitant]
     Indication: GASTRITIS PROPHYLAXIS
     Dates: start: 20121008, end: 20130823
  6. AMIKACIN SULFATE [Concomitant]
     Indication: INFECTION
     Dates: start: 20130215, end: 20130226
  7. MEROPEN [Concomitant]
     Indication: INFECTION
     Dates: start: 20130215, end: 20130223
  8. VANCOMYCIN HYDROCHLORIDE [Concomitant]
     Indication: INFECTION
     Dates: start: 20130210, end: 20130322
  9. LASIX [Concomitant]
     Indication: OEDEMA
     Dates: start: 20130215, end: 20130330
  10. SOLU-CORTEF [Concomitant]
     Dates: start: 20130220, end: 20130220
  11. SOL-MELCORT [Concomitant]
     Indication: PROPHYLAXIS AGAINST GRAFT VERSUS HOST DISEASE
     Dates: start: 20130220, end: 20130424
  12. GRANISETRON [Concomitant]
     Indication: PROPHYLAXIS
     Dates: start: 20130329, end: 20130602
  13. GRAN [Concomitant]
     Dates: start: 20130221, end: 20130302
  14. CRAVIT [Concomitant]
     Indication: PROPHYLAXIS
     Dates: start: 20130716, end: 20130720
  15. CRAVIT [Concomitant]
     Indication: PROPHYLAXIS
     Dates: start: 20130322, end: 20130325
  16. CRAVIT [Concomitant]
     Indication: PROPHYLAXIS
     Dates: start: 20130524, end: 20130611
  17. CRAVIT [Concomitant]
     Indication: PROPHYLAXIS
     Dates: start: 20130705, end: 20130709
  18. FUNGUARD [Concomitant]
     Indication: INFECTION PROPHYLAXIS
     Dates: start: 20130219, end: 20130222
  19. DALTEPARIN [Concomitant]
     Indication: THROMBOSIS PROPHYLAXIS
     Dates: start: 20130213, end: 20130305
  20. VFEND [Concomitant]
     Indication: INFECTION PROPHYLAXIS
     Dates: start: 20130222, end: 20130328
  21. VFEND [Concomitant]
     Indication: INFECTION PROPHYLAXIS
     Dates: start: 20130216, end: 20130218
  22. FINIBAX [Concomitant]
     Indication: INFECTION PROPHYLAXIS
     Dates: start: 20130223, end: 20130306
  23. BAKTAR [Concomitant]
     Indication: PROPHYLAXIS
     Dates: start: 20130527, end: 20130610
  24. BAKTAR [Concomitant]
     Indication: PROPHYLAXIS
     Dates: start: 20130709, end: 20130723
  25. PREDNISOLONE [Concomitant]
     Indication: PROPHYLAXIS AGAINST GRAFT VERSUS HOST DISEASE
     Dates: start: 20130425, end: 20130820
  26. FENTANYL [Concomitant]
     Indication: ACUTE LYMPHOCYTIC LEUKAEMIA
     Dates: start: 20130124, end: 20130319
  27. FAROM [Concomitant]
     Indication: PROPHYLAXIS
     Dates: start: 20130326, end: 20130402
  28. ALL OTHER THERAPEUTIC PRODUCTS [Concomitant]
     Indication: PROPHYLAXIS
     Dates: start: 20130329, end: 20130603
  29. IMMUNOGLOBULIN [Concomitant]
     Indication: INFECTION PROPHYLAXIS
     Dates: start: 20130621, end: 20130717

REACTIONS (13)
  - Graft versus host disease [Not Recovered/Not Resolved]
  - Bacterial infection [Unknown]
  - Bacterial infection [Unknown]
  - Diarrhoea [Not Recovered/Not Resolved]
  - Cytomegalovirus infection [Not Recovered/Not Resolved]
  - Viral haemorrhagic cystitis [Not Recovered/Not Resolved]
  - Epstein-Barr virus infection [Not Recovered/Not Resolved]
  - Fungal infection [Recovering/Resolving]
  - Infection [Not Recovered/Not Resolved]
  - Gastrointestinal haemorrhage [Unknown]
  - Venous occlusion [Not Recovered/Not Resolved]
  - Pericardial effusion [Not Recovered/Not Resolved]
  - Pleural effusion [Not Recovered/Not Resolved]
